FAERS Safety Report 13948738 (Version 1)
Quarter: 2017Q3

REPORT INFORMATION
  Report Type: Report from Study
  Country: US (occurrence: US)
  Receive Date: 20170908
  Receipt Date: 20170908
  Transmission Date: 20171128
  Serious: Yes (Other)
  Sender: FDA-Public Use
  Company Number: US-BAYER-2017-167493

PATIENT
  Age: 59 Year
  Sex: Male
  Weight: 48.53 kg

DRUGS (1)
  1. NEXAVAR [Suspect]
     Active Substance: SORAFENIB
     Indication: HEPATOCELLULAR CARCINOMA
     Dosage: 200 MG, BID
     Route: 048
     Dates: start: 201702

REACTIONS (5)
  - Grip strength decreased [Unknown]
  - Gait inability [None]
  - Blister [Unknown]
  - Inappropriate schedule of drug administration [None]
  - Rash [Unknown]
